FAERS Safety Report 8896417 (Version 1)
Quarter: 2012Q4

REPORT INFORMATION
  Report Type: Spontaneous
  Country: US (occurrence: None)
  Receive Date: 20121107
  Receipt Date: 20121107
  Transmission Date: 20130627
  Serious: Yes (Other)
  Sender: FDA-Public Use
  Company Number: None

PATIENT
  Sex: Female
  Weight: 43.09 kg

DRUGS (2)
  1. CYCLOBENZAPRINE [Suspect]
     Indication: PROLAPSED DISC NOS
     Dosage: 1-3x daily mouth
     Route: 048
  2. CYCLOBENZAPRINE [Suspect]
     Indication: NERVE COMPRESSION
     Dosage: 1-3x daily mouth
     Route: 048

REACTIONS (1)
  - Drug ineffective [None]
